FAERS Safety Report 7799226-9 (Version None)
Quarter: 2011Q4

REPORT INFORMATION
  Report Type: 
  Country: None (occurrence: None)
  Receive Date: 20111006
  Receipt Date: 20110926
  Transmission Date: 20120403
  Serious: No
  Sender: FDA-Public Use
  Company Number: US-B.I. PHARMACEUTICALS,INC./RIDGEFIELD-2011-BP-22959BP

PATIENT
  Sex: Female

DRUGS (5)
  1. NORCO [Concomitant]
     Indication: PAIN IN EXTREMITY
  2. SPIRIVA [Suspect]
     Indication: CHRONIC OBSTRUCTIVE PULMONARY DISEASE
     Dosage: 18 MCG
     Route: 055
     Dates: start: 20110902, end: 20110912
  3. GABAPENTIN [Concomitant]
     Indication: PAIN IN EXTREMITY
  4. ZOLOFT [Concomitant]
     Indication: DEPRESSION
  5. NORCO [Concomitant]
     Indication: BACK PAIN

REACTIONS (1)
  - OEDEMA PERIPHERAL [None]
